FAERS Safety Report 5199747-1 (Version None)
Quarter: 2007Q1

REPORT INFORMATION
  Report Type: 
  Country: None (occurrence: None)
  Receive Date: 20070105
  Receipt Date: 20051220
  Transmission Date: 20070707
  Serious: No
  Sender: FDA-Public Use
  Company Number: US-GLAXOSMITHKLINE-A0586457A

PATIENT
  Sex: Female

DRUGS (2)
  1. TAGAMET OTC [Suspect]
     Indication: DUODENAL ULCER
     Dosage: 600MG PER DAY
     Route: 048
  2. CLARINEX [Concomitant]

REACTIONS (4)
  - ABDOMINAL PAIN [None]
  - DRUG INEFFECTIVE [None]
  - NAUSEA [None]
  - VOMITING [None]
